FAERS Safety Report 25707004 (Version 3)
Quarter: 2025Q3

REPORT INFORMATION
  Report Type: Report from Study
  Country: CA (occurrence: CA)
  Receive Date: 20250820
  Receipt Date: 20250916
  Transmission Date: 20251021
  Serious: Yes (Death)
  Sender: PFIZER
  Company Number: CA-PFIZER INC-PV202500098714

PATIENT
  Age: 24 Year
  Sex: Female

DRUGS (14)
  1. HYDROCORTISONE SODIUM SUCCINATE [Suspect]
     Active Substance: HYDROCORTISONE SODIUM SUCCINATE
     Indication: Adrenocortical steroid therapy
     Route: 042
  2. METHYLPREDNISOLONE SODIUM SUCCINATE [Suspect]
     Active Substance: METHYLPREDNISOLONE SODIUM SUCCINATE
     Indication: Adrenocortical steroid therapy
     Route: 042
  3. VECURONIUM [Suspect]
     Active Substance: VECURONIUM BROMIDE
  4. ACETAMINOPHEN [Concomitant]
     Active Substance: ACETAMINOPHEN
  5. AMPHOTERICIN B [Concomitant]
     Active Substance: AMPHOTERICIN B
  6. DIAZEPAM [Concomitant]
     Active Substance: DIAZEPAM
  7. DOPAMINE [Concomitant]
     Active Substance: DOPAMINE HYDROCHLORIDE
  8. ERYTHROMYCIN [Concomitant]
     Active Substance: ERYTHROMYCIN
  9. INSULIN NOS [Concomitant]
     Active Substance: INSULIN NOS
  10. FENTANYL [Concomitant]
     Active Substance: FENTANYL
  11. HEPARIN [Concomitant]
     Active Substance: HEPARIN SODIUM
  12. MORPHINE [Concomitant]
     Active Substance: MORPHINE
  13. POTASSIUM CHLORIDE [Concomitant]
     Active Substance: POTASSIUM CHLORIDE
  14. ALBUTEROL [Concomitant]
     Active Substance: ALBUTEROL

REACTIONS (4)
  - Necrotising myositis [Fatal]
  - Blood creatine phosphokinase increased [Fatal]
  - Myoglobinuria [Fatal]
  - Renal failure [Fatal]
